FAERS Safety Report 8649476 (Version 2)
Quarter: 2013Q2

REPORT INFORMATION
  Report Type: Spontaneous
  Country: US (occurrence: US)
  Receive Date: 20120705
  Receipt Date: 20130510
  Transmission Date: 20140414
  Serious: Yes (Other)
  Sender: FDA-Public Use
  Company Number: US-BAYER-2012-064885

PATIENT
  Age: 30 Year
  Sex: Female

DRUGS (33)
  1. YAZ [Suspect]
     Dosage: UNK
     Dates: start: 200901
  2. YASMIN [Suspect]
     Dosage: UNK
     Dates: start: 200901
  3. NITROFURANTOIN [Concomitant]
     Dosage: 50-100 MG
  4. ZOLPIDEM [Concomitant]
     Dosage: 10 MG, UNK
  5. AZITHROMYCIN [Concomitant]
     Dosage: 250-500 MG
  6. TRETINOIN [Concomitant]
     Dosage: 0.025 %, UNK
     Route: 061
  7. CLONAZEPAM [Concomitant]
     Dosage: 0.5- 2 MG
  8. ADVAIR DISKUS [Concomitant]
     Dosage: 250/50
  9. CLINDAMYCIN [Concomitant]
     Dosage: 1 %, UNK
  10. TRIAMCINOLONE [TRIAMCINOLONE] [Concomitant]
     Dosage: 0.1 %, UNK
  11. ABILIFY [Concomitant]
     Dosage: 5 MG, UNK
  12. ABILIFY [Concomitant]
     Dosage: 2 MG, UNK
  13. FEXOFENADINE [Concomitant]
     Dosage: 180 MG, UNK
  14. FLUCONAZOLE [Concomitant]
     Dosage: 150 MG, UNK
  15. CIPROFLOXACIN [Concomitant]
     Dosage: 250 MG, UNK
  16. OMEPRAZOLE [Concomitant]
     Dosage: 20 MG, UNK
  17. VALTREX [Concomitant]
     Dosage: 1 G, UNK
  18. RETIN-A MICRO [Concomitant]
     Dosage: 0.04 %, UNK
  19. ALDARA [Concomitant]
     Dosage: 5 %, UNK
  20. ALCLOMETASONE [Concomitant]
     Dosage: 0.05 %, UNK
  21. FINACEA [Concomitant]
  22. ASTEPRO [Concomitant]
     Dosage: 137 MG, UNK
     Route: 045
  23. GEODON [Concomitant]
     Dosage: 20 MG, UNK
  24. BENZOYL PEROXIDE [Concomitant]
     Dosage: 5 %, UNK
  25. ZOVIRAX [Concomitant]
     Dosage: 5 %, UNK
  26. ELIDEL [Concomitant]
     Dosage: 1 %, UNK
  27. AMBIEN [Concomitant]
     Dosage: 10 MG, UNK
  28. SINGULAIR [Concomitant]
     Dosage: 10 MG, UNK
  29. DETROL [Concomitant]
     Dosage: 1 MG, UNK
  30. NYSTATIN [Concomitant]
  31. NYSTATIN W/TRIAMCINOLONE [NYSTATIN,TRIAMCINOLONE ACETONIDE] [Concomitant]
  32. CLOTRIMAZOLE W/BETAMETHASONE DIPROPIONAT [Concomitant]
     Dosage: 45 G, UNK
  33. NSAID^S [Concomitant]

REACTIONS (6)
  - Deep vein thrombosis [None]
  - Injury [None]
  - Pain [None]
  - Emotional distress [None]
  - Anxiety [None]
  - Psychological trauma [None]
